FAERS Safety Report 6872264-6 (Version None)
Quarter: 2010Q3

REPORT INFORMATION
  Report Type: 
  Country: None (occurrence: None)
  Receive Date: 20100721
  Receipt Date: 20100617
  Transmission Date: 20110219
  Serious: No
  Sender: FDA-Public Use
  Company Number: CC10-480

PATIENT
  Age: 19 Year
  Sex: Female

DRUGS (2)
  1. FLUTICASONE PROPIONATE [Suspect]
     Indication: ECZEMA
     Dates: start: 20100201, end: 20100401
  2. UNSPECIFIED FACE WASH (GALDERMA) [Suspect]
     Dates: start: 20100201

REACTIONS (3)
  - DRY SKIN [None]
  - SKIN EXFOLIATION [None]
  - SKIN TIGHTNESS [None]
